FAERS Safety Report 14982456 (Version 4)
Quarter: 2022Q4

REPORT INFORMATION
  Report Type: Spontaneous
  Country: US (occurrence: US)
  Receive Date: 20180607
  Receipt Date: 20221006
  Transmission Date: 20230113
  Serious: No
  Sender: FDA-Public Use
  Company Number: US-PFIZER INC-2016435719

PATIENT
  Age: 47 Year
  Sex: Female

DRUGS (6)
  1. DOCETAXEL [Suspect]
     Active Substance: DOCETAXEL
     Indication: Triple positive breast cancer
     Dosage: 75 MG/M2, CYCLIC (EVERY THREE WEEKS FOR 6 CYCLES)
     Dates: start: 20110323, end: 20110629
  2. DOCETAXEL [Suspect]
     Active Substance: DOCETAXEL
     Indication: Triple positive breast cancer
     Dosage: 75 MG/M2, CYCLIC (EVERY 3 WEEKS FOR 6 CYCLES)
     Dates: start: 20110323, end: 20110629
  3. TAXOTERE [Suspect]
     Active Substance: DOCETAXEL
     Indication: Triple positive breast cancer
     Dosage: 75 MG/M2, CYCLIC (EVERY 3 WEEKS FOR 6 CYCLES)
     Dates: start: 20110323, end: 20110629
  4. ATENOLOL [Concomitant]
     Active Substance: ATENOLOL
     Indication: Blood pressure abnormal
     Dosage: UNK
     Dates: start: 20030101
  5. PARAPLATIN [Concomitant]
     Active Substance: CARBOPLATIN
     Indication: Chemotherapy
     Dosage: UNK
  6. HERCEPTIN [Concomitant]
     Active Substance: TRASTUZUMAB
     Indication: Chemotherapy
     Dosage: UNK

REACTIONS (5)
  - Alopecia [Not Recovered/Not Resolved]
  - Hair texture abnormal [Not Recovered/Not Resolved]
  - Hair disorder [Not Recovered/Not Resolved]
  - Hair colour changes [Not Recovered/Not Resolved]
  - Madarosis [Not Recovered/Not Resolved]

NARRATIVE: CASE EVENT DATE: 20110423
